FAERS Safety Report 20645502 (Version 1)
Quarter: 2022Q1

REPORT INFORMATION
  Report Type: Spontaneous
  Country: US (occurrence: US)
  Receive Date: 20220328
  Receipt Date: 20220328
  Transmission Date: 20220423
  Serious: No
  Sender: FDA-Public Use
  Company Number: US-009507513-2203USA002612

PATIENT
  Sex: Male
  Weight: 73.605 kg

DRUGS (9)
  1. KEYTRUDA [Suspect]
     Active Substance: PEMBROLIZUMAB
  2. STELARA [Concomitant]
     Active Substance: USTEKINUMAB
  3. TRAMADOL HCL [Concomitant]
     Active Substance: TRAMADOL HYDROCHLORIDE
  4. EZETIMIBE [Concomitant]
     Active Substance: EZETIMIBE
  5. NIFEDIPINE [Concomitant]
     Active Substance: NIFEDIPINE
  6. HYDRALAZINE HCL [Concomitant]
     Active Substance: HYDRALAZINE HYDROCHLORIDE
  7. METOPROLOL TARTRATE [Concomitant]
     Active Substance: METOPROLOL TARTRATE
  8. LANTUS [Concomitant]
     Active Substance: INSULIN GLARGINE
  9. GLIPIZIDE [Concomitant]
     Active Substance: GLIPIZIDE

REACTIONS (2)
  - Psoriasis [Unknown]
  - Ill-defined disorder [Unknown]
